FAERS Safety Report 11216874 (Version 1)
Quarter: 2015Q2

REPORT INFORMATION
  Report Type: Spontaneous
  Country: DK (occurrence: FR)
  Receive Date: 20150624
  Receipt Date: 20150624
  Transmission Date: 20150821
  Serious: Yes (Other)
  Sender: FDA-Public Use
  Company Number: FR-FRI-1000077704

PATIENT

DRUGS (2)
  1. OMEPRAZOLE. [Suspect]
     Active Substance: OMEPRAZOLE
     Indication: PRODUCT USED FOR UNKNOWN INDICATION
     Dosage: 10 MG
     Route: 048
  2. ESCITALOPRAM [Suspect]
     Active Substance: ESCITALOPRAM OXALATE
     Indication: PRODUCT USED FOR UNKNOWN INDICATION
     Dosage: 10 MG
     Route: 048

REACTIONS (8)
  - Urinary retention [Unknown]
  - Decreased appetite [Unknown]
  - Malaise [Unknown]
  - Vertigo [Unknown]
  - Nausea [Unknown]
  - Ocular hyperaemia [Unknown]
  - Constipation [Unknown]
  - Eye swelling [Unknown]
